FAERS Safety Report 23302638 (Version 1)
Quarter: 2023Q4

REPORT INFORMATION
  Report Type: Spontaneous
  Country: US (occurrence: None)
  Receive Date: 20231215
  Receipt Date: 20231215
  Transmission Date: 20240110
  Serious: Yes (Death, Hospitalization)
  Sender: FDA-Public Use
  Company Number: 2023A285540

PATIENT
  Age: 62 Year
  Sex: Female

DRUGS (5)
  1. QUETIAPINE [Suspect]
     Active Substance: QUETIAPINE
     Route: 048
  2. ETHYLENE GLYCOL [Suspect]
     Active Substance: ETHYLENE GLYCOL
     Route: 048
  3. BUPROPION [Suspect]
     Active Substance: BUPROPION
     Route: 048
  4. DULOXETINE [Suspect]
     Active Substance: DULOXETINE
     Route: 048
  5. HYDROXYZINE [Suspect]
     Active Substance: HYDROXYZINE HYDROCHLORIDE
     Route: 048

REACTIONS (2)
  - Toxicity to various agents [Fatal]
  - Completed suicide [Fatal]
